FAERS Safety Report 18224977 (Version 1)
Quarter: 2020Q3

REPORT INFORMATION
  Report Type: Spontaneous
  Country: US (occurrence: US)
  Receive Date: 20200903
  Receipt Date: 20200903
  Transmission Date: 20201103
  Serious: Yes (Death)
  Sender: FDA-Public Use
  Company Number: US-ROCHE-2669913

PATIENT
  Sex: Male

DRUGS (23)
  1. DICLOFENAC [Concomitant]
     Active Substance: DICLOFENAC
  2. HYDROXYZINE HCL [Concomitant]
     Active Substance: HYDROXYZINE HYDROCHLORIDE
  3. MUPIROCIN. [Concomitant]
     Active Substance: MUPIROCIN
  4. FUROSEMIDE. [Concomitant]
     Active Substance: FUROSEMIDE
  5. SIMVASTATIN. [Concomitant]
     Active Substance: SIMVASTATIN
  6. ESBRIET [Suspect]
     Active Substance: PIRFENIDONE
     Indication: IDIOPATHIC PULMONARY FIBROSIS
     Dosage: 1 TABLET BY MOUTH THREE TIMES DAILY WITH MEALS, DAYS 8?14
     Route: 048
     Dates: start: 20200808, end: 202008
  7. ESBRIET [Suspect]
     Active Substance: PIRFENIDONE
     Dosage: 2 TABLETS BY MOUTH THREE TIMES DAILY WITH MEALS, DAYS 15+
     Route: 048
     Dates: start: 20200808, end: 202008
  8. AZITHROMYCIN ANHYDROUS. [Concomitant]
     Active Substance: AZITHROMYCIN ANHYDROUS
  9. LEVOFLOXACIN. [Concomitant]
     Active Substance: LEVOFLOXACIN
  10. PROSCAR [Concomitant]
     Active Substance: FINASTERIDE
  11. ALBUTEROL. [Concomitant]
     Active Substance: ALBUTEROL
  12. CLOTRIMAZOLE. [Concomitant]
     Active Substance: CLOTRIMAZOLE
  13. BENZONATATE. [Concomitant]
     Active Substance: BENZONATATE
  14. CYCLOBENZAPRINE. [Concomitant]
     Active Substance: CYCLOBENZAPRINE
  15. FLUTICASONE. [Concomitant]
     Active Substance: FLUTICASONE
  16. TRELEGY ELLIPTA [Concomitant]
     Active Substance: FLUTICASONE FUROATE\UMECLIDINIUM BROMIDE\VILANTEROL TRIFENATATE
  17. FINASTERIDE. [Concomitant]
     Active Substance: FINASTERIDE
  18. LANSOPRAZOLE. [Concomitant]
     Active Substance: LANSOPRAZOLE
  19. ESBRIET [Suspect]
     Active Substance: PIRFENIDONE
     Dosage: 3 TABLETS BY MOUTH THREE TIMES DAILY WITH MEALS,ONGOING : NO
     Route: 048
     Dates: start: 20200808, end: 202008
  20. PREDNISONE. [Concomitant]
     Active Substance: PREDNISONE
  21. KETOCONAZOLE. [Concomitant]
     Active Substance: KETOCONAZOLE
  22. METHYLPREDNISOLONE. [Concomitant]
     Active Substance: METHYLPREDNISOLONE
  23. TAMSULOSIN [Concomitant]
     Active Substance: TAMSULOSIN

REACTIONS (1)
  - Death [Fatal]
